FAERS Safety Report 4578520-9 (Version None)
Quarter: 2005Q1

REPORT INFORMATION
  Report Type: 
  Country: None (occurrence: None)
  Receive Date: 20050207
  Receipt Date: 20050207
  Transmission Date: 20050727
  Serious: No
  Sender: FDA-Public Use
  Company Number: None

PATIENT
  Sex: Male
  Weight: 86.1834 kg

DRUGS (1)
  1. BEXTRA [Suspect]
     Indication: PAIN IN EXTREMITY
     Dosage: ONCE A DAY     FOR 7 DAYS   ORAL
     Route: 048
     Dates: start: 20020926, end: 20021005

REACTIONS (10)
  - BODY TEMPERATURE DECREASED [None]
  - CHEST PAIN [None]
  - HEADACHE [None]
  - MUCOSAL INFLAMMATION [None]
  - OEDEMA MOUTH [None]
  - RASH GENERALISED [None]
  - SEXUAL DYSFUNCTION [None]
  - SKIN REACTION [None]
  - STOMATITIS [None]
  - SWELLING [None]
